FAERS Safety Report 4702642-2 (Version None)
Quarter: 2005Q2

REPORT INFORMATION
  Report Type: 
  Country: None (occurrence: None)
  Receive Date: 20050629
  Receipt Date: 20040728
  Transmission Date: 20051028
  Serious: No
  Sender: FDA-Public Use
  Company Number: 2065362

PATIENT
  Age: 63 Year
  Sex: Female

DRUGS (2)
  1. ZYBAN [Suspect]
     Route: 048
  2. NICODERM CQ [Concomitant]
     Route: 061

REACTIONS (1)
  - ANGER [None]
